FAERS Safety Report 7898162-7 (Version None)
Quarter: 2011Q4

REPORT INFORMATION
  Report Type: 
  Country: None (occurrence: None)
  Receive Date: 20111103
  Receipt Date: 20111020
  Transmission Date: 20120403
  Serious: Yes (Hospitalization, Other)
  Sender: FDA-Public Use
  Company Number: 2011MA015623

PATIENT
  Age: 76 Year
  Sex: Male

DRUGS (6)
  1. AMLODIPINE [Concomitant]
  2. VALSARTAN [Concomitant]
  3. VENLAFAXINE HYDROCHLORIDE [Suspect]
     Dosage: 75 MG;
  4. BENDROFLUMETHIAZIDE (BENDROFLUMETHIAZIDE) [Suspect]
     Indication: HYPERTENSION
  5. MIRTAZAPINE [Suspect]
     Indication: HYPERTENSION
     Dosage: 15 MG;
     Dates: start: 20050101
  6. LORAZEPAM [Concomitant]

REACTIONS (4)
  - HEAD INJURY [None]
  - URINARY HESITATION [None]
  - FALL [None]
  - BLOOD SODIUM DECREASED [None]
